FAERS Safety Report 12964190 (Version 3)
Quarter: 2019Q1

REPORT INFORMATION
  Report Type: Report from Study
  Country: US (occurrence: US)
  Receive Date: 20161122
  Receipt Date: 20190129
  Transmission Date: 20190417
  Serious: Yes (Other)
  Sender: FDA-Public Use
  Company Number: ALCN2016US007806

PATIENT
  Age: 65 Year
  Sex: Female

DRUGS (3)
  1. TRAVATAN Z [Suspect]
     Active Substance: TRAVOPROST
     Indication: PRODUCT USED FOR UNKNOWN INDICATION
     Dosage: UNK UNK, QHS (OU)
     Route: 047
     Dates: start: 20160805
  2. PREDNISOLONE ACETATE. [Suspect]
     Active Substance: PREDNISOLONE ACETATE
     Indication: IRITIS
     Dosage: UNK UNK, QID (BOTH EYES)
     Route: 065
     Dates: start: 20160805, end: 20161001
  3. SIMBRINZA [Suspect]
     Active Substance: BRIMONIDINE TARTRATE\BRINZOLAMIDE
     Indication: PRODUCT USED FOR UNKNOWN INDICATION
     Dosage: UNK UNK, BID (OU)
     Route: 047
     Dates: start: 20160805

REACTIONS (5)
  - Vision blurred [Unknown]
  - Intraocular pressure increased [Unknown]
  - Corneal oedema [Recovered/Resolved]
  - Glaucoma [Unknown]
  - Visual impairment [Unknown]

NARRATIVE: CASE EVENT DATE: 20161001
